FAERS Safety Report 13256679 (Version 1)
Quarter: 2017Q1

REPORT INFORMATION
  Report Type: Spontaneous
  Country: JP (occurrence: JP)
  Receive Date: 20170221
  Receipt Date: 20170221
  Transmission Date: 20170428
  Serious: Yes (Hospitalization, Other)
  Sender: FDA-Public Use
  Company Number: JP-BAYER-2016-241326

PATIENT
  Age: 77 Year
  Sex: Male

DRUGS (8)
  1. ATELEC [Concomitant]
     Active Substance: CILNIDIPINE
     Dosage: DAILY DOSE 10 MG
     Route: 048
  2. ARTIST [Concomitant]
     Active Substance: CARVEDILOL
     Dosage: DAILY DOSE 2.5 MG
     Route: 048
  3. XARELTO [Suspect]
     Active Substance: RIVAROXABAN
     Indication: ATRIAL FIBRILLATION
     Dosage: 10 MG, QD
     Route: 048
     Dates: end: 20161117
  4. FAMOTIDINE. [Concomitant]
     Active Substance: FAMOTIDINE
     Dosage: DAILY DOSE 20 MG
     Route: 048
  5. BAYASPIRIN 100 MG [Suspect]
     Active Substance: ASPIRIN
     Dosage: DAILY DOSE 100 MG
     Route: 048
     Dates: start: 20161118, end: 20161213
  6. XARELTO [Suspect]
     Active Substance: RIVAROXABAN
     Indication: ATRIAL FIBRILLATION
     Dosage: 15 UNK, QD
     Route: 048
     Dates: start: 20161118, end: 20161211
  7. NU-LOTAN [Concomitant]
     Active Substance: LOSARTAN POTASSIUM
     Dosage: DAILY DOSE 50 MG
     Route: 048
  8. ALOSENN [Concomitant]
     Active Substance: SENNA LEAF
     Dosage: DAILY DOSE .5 G
     Route: 048

REACTIONS (3)
  - Melaena [Recovering/Resolving]
  - Myocardial infarction [None]
  - Haematochezia [Recovering/Resolving]

NARRATIVE: CASE EVENT DATE: 20161117
